FAERS Safety Report 17561438 (Version 1)
Quarter: 2020Q1

REPORT INFORMATION
  Report Type: Spontaneous
  Country: US (occurrence: US)
  Receive Date: 20200319
  Receipt Date: 20200319
  Transmission Date: 20200409
  Serious: No
  Sender: FDA-Public Use
  Company Number: US-RISING PHARMACEUTICALS, INC.-2020RIS00061

PATIENT
  Sex: Female

DRUGS (1)
  1. ZILEUTON. [Suspect]
     Active Substance: ZILEUTON

REACTIONS (1)
  - Malaise [Unknown]
